FAERS Safety Report 16456149 (Version 2)
Quarter: 2019Q4

REPORT INFORMATION
  Report Type: Spontaneous
  Country: US (occurrence: US)
  Receive Date: 20190620
  Receipt Date: 20191123
  Transmission Date: 20200122
  Serious: No
  Sender: FDA-Public Use
  Company Number: PHHY2019US137368

PATIENT
  Sex: Female

DRUGS (1)
  1. GENTEAL NIGHT-TIME PM [Suspect]
     Active Substance: MINERAL OIL\PETROLATUM
     Indication: PRODUCT USED FOR UNKNOWN INDICATION
     Route: 047

REACTIONS (1)
  - Vision blurred [Recovered/Resolved]
